FAERS Safety Report 19680221 (Version 1)
Quarter: 2021Q3

REPORT INFORMATION
  Report Type: Spontaneous
  Country: US (occurrence: US)
  Receive Date: 20210810
  Receipt Date: 20210810
  Transmission Date: 20211014
  Serious: Yes (Disabling)
  Sender: FDA-Public Use
  Company Number: None

PATIENT
  Age: 16 Year
  Sex: Male
  Weight: 78.3 kg

DRUGS (2)
  1. NAPROXEN. [Concomitant]
     Active Substance: NAPROXEN
  2. CLARAVIS [Suspect]
     Active Substance: ISOTRETINOIN
     Indication: ACNE
     Dosage: ?          QUANTITY:1 CAPSULE(S);?
     Route: 048
     Dates: start: 20171101, end: 20200601

REACTIONS (7)
  - Erectile dysfunction [None]
  - Alopecia [None]
  - Back pain [None]
  - Dry eye [None]
  - Loss of libido [None]
  - Testicular pain [None]
  - Gastrointestinal disorder [None]

NARRATIVE: CASE EVENT DATE: 20200620
